FAERS Safety Report 7473966-3 (Version None)
Quarter: 2011Q2

REPORT INFORMATION
  Report Type: 
  Country: None (occurrence: None)
  Receive Date: 20110511
  Receipt Date: 20081103
  Transmission Date: 20111010
  Serious: Yes (Hospitalization, Disabling, Other)
  Sender: FDA-Public Use
  Company Number: US-BAYER-200837953NA

PATIENT
  Age: 49 Year
  Sex: Male
  Weight: 68.027 kg

DRUGS (19)
  1. TRASYLOL [Suspect]
     Indication: CARDIAC PSEUDOANEURYSM
  2. PLATELETS [Concomitant]
     Dosage: 4 UNITS
     Route: 042
     Dates: start: 20080121
  3. PLATELETS [Concomitant]
     Dosage: 40 UNITS
     Route: 042
     Dates: start: 20080118
  4. FRESH FROZEN PLASMA [Concomitant]
     Dosage: 2 UNITS
     Route: 042
     Dates: start: 20080118
  5. ENALAPRIL MALEATE [Concomitant]
     Dosage: 2.5MG DAILY
     Route: 048
  6. INSPRA [Concomitant]
     Dosage: 25MG DAILY
     Route: 048
  7. TRASYLOL [Suspect]
     Indication: STERNOTOMY
  8. CRESTOR [Concomitant]
     Dosage: 5MG DAILY
     Route: 048
  9. RED BLOOD CELLS, CONCENTRATED [Concomitant]
     Dosage: PACKED RED BLOOD CELLS.
     Dates: start: 20080118
  10. EPINEPHRINE [Concomitant]
     Dosage: UNK
     Route: 042
     Dates: start: 20080118
  11. PLATELETS [Concomitant]
     Dosage: 3 UNITS
     Route: 042
     Dates: start: 20080124
  12. HEPARIN [Concomitant]
     Dosage: TITRATED
     Route: 042
  13. COREG [Concomitant]
     Dosage: 3.125MG, 2 X DAILY
     Route: 048
  14. ASPIRIN [Concomitant]
     Dosage: 325MG DAILY
     Route: 048
  15. ANCEF [Concomitant]
     Dosage: 2GM
     Route: 042
     Dates: start: 20080118
  16. TRASYLOL [Suspect]
     Indication: MITRAL VALVE REPLACEMENT
     Dosage: UNK
     Route: 042
     Dates: start: 20080118
  17. COLACE [Concomitant]
     Dosage: 100MG 3XDAILY
     Route: 048
  18. FUROSEMIDE [Concomitant]
     Dosage: 40MG DAILY
     Route: 048
  19. VASOTEC [Concomitant]
     Dosage: 2.5MG, 2XDAILY
     Route: 048

REACTIONS (7)
  - UNEVALUABLE EVENT [None]
  - INJURY [None]
  - CEREBROVASCULAR ACCIDENT [None]
  - BLINDNESS [None]
  - PAIN [None]
  - EMOTIONAL DISTRESS [None]
  - ANXIETY [None]
